FAERS Safety Report 4875001-X (Version None)
Quarter: 2006Q1

REPORT INFORMATION
  Report Type: 
  Country: None (occurrence: None)
  Receive Date: 20060104
  Receipt Date: 20051205
  Transmission Date: 20060701
  Serious: Yes (Hospitalization)
  Sender: FDA-Public Use
  Company Number: HR200512002021

PATIENT
  Age: 72 Year
  Sex: Female

DRUGS (4)
  1. FORTEO [Suspect]
     Dosage: 20 UG/DAY, UNK, SUBCUTANEOUS
     Route: 058
     Dates: start: 20050521, end: 20050801
  2. FORTEO PEN (250MCG/ML) (FORTEO PEN 150MCG/ML (3ML) PEN, DISPOSABLE [Concomitant]
  3. PEPTORAN (RANITIDINE) [Concomitant]
  4. TEOLIN (THEOPHYLLINE) [Concomitant]

REACTIONS (6)
  - ABASIA [None]
  - BACK PAIN [None]
  - DYSSTASIA [None]
  - TREMOR [None]
  - URINE CALCIUM DECREASED [None]
  - URINE PHOSPHATE DECREASED [None]
